FAERS Safety Report 10132620 (Version 1)
Quarter: 2014Q2

REPORT INFORMATION
  Report Type: Spontaneous
  Country: US (occurrence: US)
  Receive Date: 20140428
  Receipt Date: 20140428
  Transmission Date: 20141212
  Serious: No
  Sender: FDA-Public Use
  Company Number: US-MALLINCKRODT-T201304488

PATIENT
  Sex: Male
  Weight: 79.37 kg

DRUGS (1)
  1. HYDROCODONE/ACETAMINOPHEN [Suspect]
     Indication: BACK PAIN
     Dosage: 10/500 MG, TID
     Route: 048

REACTIONS (2)
  - Extra dose administered [Recovered/Resolved]
  - Drug ineffective [Recovered/Resolved]
